FAERS Safety Report 4711141-3 (Version None)
Quarter: 2005Q3

REPORT INFORMATION
  Report Type: 
  Country: None (occurrence: None)
  Receive Date: 20050708
  Receipt Date: 20050628
  Transmission Date: 20060218
  Serious: Yes (Other)
  Sender: FDA-Public Use
  Company Number: GBWYE781528JUN05

PATIENT
  Sex: Male

DRUGS (2)
  1. EFFEXOR [Suspect]
  2. ZOPICLONE (ZOPICLONE) [Concomitant]

REACTIONS (4)
  - BLOOD CREATINE PHOSPHOKINASE INCREASED [None]
  - BLOOD CREATININE INCREASED [None]
  - MULTIPLE DRUG OVERDOSE [None]
  - MUSCLE INJURY [None]
